FAERS Safety Report 24391542 (Version 1)
Quarter: 2024Q4

REPORT INFORMATION
  Report Type: Spontaneous
  Country: US (occurrence: None)
  Receive Date: 20241002
  Receipt Date: 20241002
  Transmission Date: 20250114
  Serious: Yes (Death)
  Sender: Public
  Company Number: None

PATIENT
  Age: 82 Year
  Sex: Female

DRUGS (11)
  1. REPATHA [Suspect]
     Active Substance: EVOLOCUMAB
     Indication: Hyperlipidaemia
     Dosage: OTHER FREQUENCY : EVERY 2 WEEKS;?
     Route: 058
     Dates: end: 20240902
  2. NOVOLOG [Concomitant]
     Active Substance: INSULIN ASPART
  3. ELIQUIS [Concomitant]
     Active Substance: APIXABAN
  4. OMEPRAZOLE [Concomitant]
     Active Substance: OMEPRAZOLE
  5. LANTUS SOLOSTAR [Concomitant]
     Active Substance: INSULIN GLARGINE
  6. LOSARTAN [Concomitant]
     Active Substance: LOSARTAN
  7. MYCOPHENOLIC ACID [Concomitant]
     Active Substance: MYCOPHENOLIC ACID
  8. SERTRALINE [Concomitant]
     Active Substance: SERTRALINE HYDROCHLORIDE
  9. VITAMIN D [Concomitant]
     Active Substance: VITAMIN D NOS
  10. POTASSIUM CHLORIDE [Concomitant]
     Active Substance: POTASSIUM CHLORIDE
  11. BUMETANIDE [Concomitant]
     Active Substance: BUMETANIDE

REACTIONS (1)
  - Death [None]

NARRATIVE: CASE EVENT DATE: 20240902
